FAERS Safety Report 9494795 (Version 3)
Quarter: 2013Q4

REPORT INFORMATION
  Report Type: Spontaneous
  Country: US (occurrence: US)
  Receive Date: 20130903
  Receipt Date: 20131018
  Transmission Date: 20140711
  Serious: No
  Sender: FDA-Public Use
  Company Number: US-PFIZER INC-2013249731

PATIENT
  Sex: Female

DRUGS (3)
  1. LEVOTHYROXINE SODIUM [Suspect]
     Indication: HYPOTHYROIDISM
     Dosage: 88 UG, 1X/DAY
  2. LEVOTHYROXINE SODIUM [Suspect]
     Dosage: UNK
     Dates: start: 2013
  3. SYNTHROID [Suspect]
     Indication: HYPOTHYROIDISM
     Dosage: 88 UG, 1X/DAY
     Dates: start: 2013, end: 2013

REACTIONS (4)
  - Asthenia [Unknown]
  - Fatigue [Unknown]
  - Somnolence [Unknown]
  - Drug ineffective [Unknown]
